FAERS Safety Report 9227144 (Version 1)
Quarter: 2013Q1

REPORT INFORMATION
  Report Type: Spontaneous
  Country: US (occurrence: None)
  Receive Date: 20120914
  Receipt Date: 20120914
  Transmission Date: 20140127
  Serious: Yes (Other)
  Sender: FDA-Public Use
  Company Number: JPI-P-019171

PATIENT
  Age: 43 Year
  Sex: Female

DRUGS (3)
  1. XYREM (500 MILLIGRAM/MILLILITERS, SOLUTION) (SODIUM OXYBATE) [Suspect]
     Indication: NARCOLEPSY
     Dosage: (UNKNOWN), ORAL
     Route: 048
     Dates: start: 20090526
  2. FLUOXETINE [Concomitant]
  3. BUPROPION [Concomitant]

REACTIONS (4)
  - Drug abuse [None]
  - Xanthopsia [None]
  - Vision blurred [None]
  - Anxiety [None]
